FAERS Safety Report 5853475-5 (Version None)
Quarter: 2008Q3

REPORT INFORMATION
  Report Type: 
  Country: None (occurrence: None)
  Receive Date: 20080814
  Receipt Date: 20080807
  Transmission Date: 20090109
  Serious: Yes (Life-Threatening, Hospitalization)
  Sender: FDA-Public Use
  Company Number: 200813935

PATIENT
  Age: 68 Year
  Sex: Female
  Weight: 65 kg

DRUGS (8)
  1. ANTIHEMOPHILIC FACTOR NOS [Suspect]
     Indication: COLON POLYPECTOMY
     Dosage: 1000 U ONCE; IV; 500 U ONCE IV
     Route: 042
     Dates: start: 20080807, end: 20080807
  2. ANTIHEMOPHILIC FACTOR NOS [Suspect]
     Indication: VON WILLEBRAND'S DISEASE
     Dosage: 1000 U ONCE; IV; 500 U ONCE IV
     Route: 042
     Dates: start: 20080807, end: 20080807
  3. ANTIHEMOPHILIC FACTOR NOS [Suspect]
     Indication: COLON POLYPECTOMY
     Dosage: 1000 U ONCE; IV; 500 U ONCE IV
     Route: 042
     Dates: start: 20080807, end: 20080807
  4. ANTIHEMOPHILIC FACTOR NOS [Suspect]
     Indication: VON WILLEBRAND'S DISEASE
     Dosage: 1000 U ONCE; IV; 500 U ONCE IV
     Route: 042
     Dates: start: 20080807, end: 20080807
  5. ANTIHEMOPHILIC FACTOR NOS [Suspect]
  6. DECOTRIN H [Concomitant]
  7. TORSEMIDE [Concomitant]
  8. LEVOTHYROXINE SODIUM [Concomitant]

REACTIONS (4)
  - HYPOTENSION [None]
  - PULMONARY OEDEMA [None]
  - SHOCK [None]
  - SOMNOLENCE [None]
